FAERS Safety Report 19756880 (Version 1)
Quarter: 2021Q3

REPORT INFORMATION
  Report Type: Spontaneous
  Country: NL (occurrence: NL)
  Receive Date: 20210827
  Receipt Date: 20210827
  Transmission Date: 20211014
  Serious: Yes (Life-Threatening)
  Sender: FDA-Public Use
  Company Number: NL-TEVA-2021-NL-1944394

PATIENT
  Age: 76 Year
  Sex: Female
  Weight: 80 kg

DRUGS (2)
  1. OMEPRAZOL CAPSULE MSR 20MG / MAAGZUURREMMER OMEPRAZOL CF CAPSULE MSR 2 [Concomitant]
     Dosage: 20 MG (MILLIGRAM)THERAPY START DATE:THERAPY END DATE :ASKU
  2. LISINOPRIL TABLET  5MG / BRAND NAME NOT SPECIFIED [Suspect]
     Active Substance: LISINOPRIL
     Indication: HYPERTENSION
     Dosage: 5 MILLIGRAM DAILY; 1DD 1ST PO
     Dates: start: 2020, end: 20210802

REACTIONS (1)
  - Pancreatitis acute [Recovering/Resolving]

NARRATIVE: CASE EVENT DATE: 20210802
